FAERS Safety Report 5403262-7 (Version None)
Quarter: 2007Q3

REPORT INFORMATION
  Report Type: 
  Country: None (occurrence: None)
  Receive Date: 20070801
  Receipt Date: 20070720
  Transmission Date: 20080115
  Serious: Yes (Other)
  Sender: FDA-Public Use
  Company Number: BR-PFIZER INC-2007060991

PATIENT
  Sex: Female
  Weight: 106 kg

DRUGS (1)
  1. PIROXICAM [Suspect]
     Indication: MYALGIA
     Dosage: TEXT:UNKNOWN
     Route: 060
     Dates: start: 20060901, end: 20060901

REACTIONS (1)
  - ASTHMATIC CRISIS [None]
